FAERS Safety Report 6768479-8 (Version None)
Quarter: 2010Q2

REPORT INFORMATION
  Report Type: 
  Country: None (occurrence: None)
  Receive Date: 20100614
  Receipt Date: 20100514
  Transmission Date: 20101027
  Serious: No
  Sender: FDA-Public Use
  Company Number: US-BAYER-201023410NA

PATIENT
  Age: 79 Year
  Sex: Male
  Weight: 102 kg

DRUGS (12)
  1. ULTRAVIST 370 [Suspect]
     Indication: COMPUTERISED TOMOGRAM THORAX
     Dosage: TOTAL DAILY DOSE: 80 ML  UNIT DOSE: 500 ML
     Route: 042
     Dates: start: 20100514, end: 20100514
  2. LOVAZA [Concomitant]
  3. ACIPHEX [Concomitant]
  4. TEKTURNA [Concomitant]
  5. ATACAND [Concomitant]
  6. HCTZ [Concomitant]
  7. GLUCOSAMINE [Concomitant]
  8. SAW PALMETTO [Concomitant]
  9. TOPROL-XL [Concomitant]
  10. NORVASC [Concomitant]
  11. ASPIRIN [Concomitant]
  12. VITAMIN D [Concomitant]

REACTIONS (2)
  - PRURITUS [None]
  - URTICARIA [None]
